FAERS Safety Report 11393163 (Version 2)
Quarter: 2015Q3

REPORT INFORMATION
  Report Type: Spontaneous
  Country: PL (occurrence: PL)
  Receive Date: 20150818
  Receipt Date: 20150831
  Transmission Date: 20151125
  Serious: Yes (Hospitalization, Other)
  Sender: FDA-Public Use
  Company Number: PL-BAXTER-2015BAX044411

PATIENT
  Age: 73 Year
  Sex: Female

DRUGS (9)
  1. 5-FLUOROURACIL [Suspect]
     Active Substance: FLUOROURACIL
     Indication: INVASIVE DUCTAL BREAST CARCINOMA
     Route: 065
     Dates: end: 201404
  2. METHOTREXATE [Suspect]
     Active Substance: METHOTREXATE
     Indication: B-CELL LYMPHOMA STAGE III
  3. ENDOXAN [Suspect]
     Active Substance: CYCLOPHOSPHAMIDE
     Indication: INVASIVE DUCTAL BREAST CARCINOMA
     Route: 065
  4. 5-FLUOROURACIL [Suspect]
     Active Substance: FLUOROURACIL
     Indication: B-CELL LYMPHOMA STAGE III
     Route: 065
     Dates: start: 201312
  5. 5-FLUOROURACIL [Suspect]
     Active Substance: FLUOROURACIL
     Indication: BREAST CANCER RECURRENT
     Dosage: 2 MORE DOSES
     Route: 065
  6. ENDOXAN [Suspect]
     Active Substance: CYCLOPHOSPHAMIDE
     Indication: B-CELL LYMPHOMA STAGE III
     Route: 065
     Dates: start: 201312
  7. METHOTREXATE [Suspect]
     Active Substance: METHOTREXATE
     Indication: INVASIVE DUCTAL BREAST CARCINOMA
     Route: 065
     Dates: start: 201312
  8. ENDOXAN [Suspect]
     Active Substance: CYCLOPHOSPHAMIDE
     Indication: BREAST CANCER RECURRENT
     Dosage: 2 MORE CYCLES
     Route: 065
     Dates: end: 201404
  9. DOXORUBICIN [Suspect]
     Active Substance: DOXORUBICIN
     Indication: BREAST CANCER RECURRENT
     Route: 065
     Dates: end: 201404

REACTIONS (10)
  - Breast cancer recurrent [Recovered/Resolved]
  - Malignant pleural effusion [Recovering/Resolving]
  - Anaemia [Unknown]
  - Metastases to thorax [Recovered/Resolved]
  - Metastases to pleura [Unknown]
  - Pulmonary embolism [Recovered/Resolved]
  - Metastases to abdominal cavity [Recovered/Resolved]
  - Metastases to peritoneum [Recovered/Resolved]
  - Metastases to lymph nodes [Recovering/Resolving]
  - Invasive breast carcinoma [Unknown]

NARRATIVE: CASE EVENT DATE: 2013
